FAERS Safety Report 12349929 (Version 1)
Quarter: 2016Q2

REPORT INFORMATION
  Report Type: Spontaneous
  Country: US (occurrence: None)
  Receive Date: 20160509
  Receipt Date: 20160509
  Transmission Date: 20160815
  Serious: Yes (Hospitalization)
  Sender: FDA-Public Use
  Company Number: None

PATIENT
  Age: 67 Year
  Sex: Female
  Weight: 100 kg

DRUGS (2)
  1. MEMANTINE HYDROCHLORIDE. [Suspect]
     Active Substance: MEMANTINE HYDROCHLORIDE
     Dates: end: 20160426
  2. NSAIDS [Concomitant]
     Active Substance: UNSPECIFIED INGREDIENT

REACTIONS (7)
  - Pulmonary embolism [None]
  - Upper gastrointestinal haemorrhage [None]
  - Muscular weakness [None]
  - Deep vein thrombosis [None]
  - Duodenal ulcer [None]
  - Anaemia [None]
  - Immobile [None]

NARRATIVE: CASE EVENT DATE: 20160426
